FAERS Safety Report 8202821-6 (Version None)
Quarter: 2012Q1

REPORT INFORMATION
  Report Type: 
  Country: None (occurrence: None)
  Receive Date: 20120312
  Receipt Date: 20120312
  Transmission Date: 20120608
  Serious: Yes (Hospitalization)
  Sender: FDA-Public Use
  Company Number: None

PATIENT
  Age: 54 Year
  Sex: Male
  Weight: 53.07 kg

DRUGS (1)
  1. DASATINIB [Suspect]
     Dosage: 75MG
     Route: 048
     Dates: start: 20111212, end: 20120129

REACTIONS (7)
  - STAPHYLOCOCCUS TEST POSITIVE [None]
  - BLOOD PRESSURE DECREASED [None]
  - BACTERAEMIA [None]
  - PNEUMONIA [None]
  - NAUSEA [None]
  - DIARRHOEA [None]
  - CATHETER SITE DISCHARGE [None]
